FAERS Safety Report 14692543 (Version 2)
Quarter: 2018Q3

REPORT INFORMATION
  Report Type: Report from Study
  Country: None (occurrence: BR)
  Receive Date: 20180329
  Receipt Date: 20180709
  Transmission Date: 20181010
  Serious: Yes (Hospitalization, Other)
  Sender: FDA-Public Use
  Company Number: BR-ABBVIE-18K-020-2300212-00

PATIENT
  Age: 65 Year
  Sex: Female
  Weight: 47 kg

DRUGS (7)
  1. METHOTREXATE. [Concomitant]
     Active Substance: METHOTREXATE
     Indication: RHEUMATIC DISORDER
  2. CALCIUM [Concomitant]
     Active Substance: CALCIUM
     Indication: RHEUMATIC DISORDER
  3. DEFLAZACORT [Concomitant]
     Active Substance: DEFLAZACORT
     Indication: PAIN
  4. HUMIRA [Suspect]
     Active Substance: ADALIMUMAB
     Indication: RHEUMATOID ARTHRITIS
     Route: 058
     Dates: start: 20100101, end: 20171117
  5. HUMIRA [Suspect]
     Active Substance: ADALIMUMAB
     Route: 058
  6. DEFLAZACORT [Concomitant]
     Active Substance: DEFLAZACORT
     Indication: RHEUMATIC DISORDER
  7. MELOXICAM. [Concomitant]
     Active Substance: MELOXICAM
     Indication: ANTIINFLAMMATORY THERAPY

REACTIONS (16)
  - Pain in extremity [Not Recovered/Not Resolved]
  - Nervousness [Recovering/Resolving]
  - Muscular weakness [Recovering/Resolving]
  - Osteoporosis [Unknown]
  - Urinary tract infection [Recovered/Resolved]
  - Memory impairment [Recovering/Resolving]
  - Joint lock [Recovering/Resolving]
  - Pain [Recovering/Resolving]
  - Joint instability [Recovering/Resolving]
  - Metabolic disorder [Recovering/Resolving]
  - Musculoskeletal discomfort [Recovering/Resolving]
  - Osteoarthritis [Recovered/Resolved]
  - Joint instability [Recovered/Resolved]
  - Anxiety [Recovering/Resolving]
  - Nephrolithiasis [Recovered/Resolved]
  - Anxiety [Recovering/Resolving]

NARRATIVE: CASE EVENT DATE: 2015
